FAERS Safety Report 12544230 (Version 2)
Quarter: 2016Q4

REPORT INFORMATION
  Report Type: Spontaneous
  Country: IT (occurrence: IT)
  Receive Date: 20160711
  Receipt Date: 20161017
  Transmission Date: 20170207
  Serious: Yes (Hospitalization)
  Sender: FDA-Public Use
  Company Number: IT-AUROBINDO-AUR-APL-2016-08579

PATIENT
  Age: 12 Year
  Sex: Female
  Weight: 36 kg

DRUGS (1)
  1. SERTRALINE 50MG [Suspect]
     Active Substance: SERTRALINE HYDROCHLORIDE
     Indication: SCHOOL REFUSAL
     Dosage: 50 MG, DAILY
     Route: 065
     Dates: start: 20160101, end: 20160602

REACTIONS (4)
  - Papilloedema [Recovering/Resolving]
  - Vomiting [Unknown]
  - Benign intracranial hypertension [Recovering/Resolving]
  - Headache [Unknown]

NARRATIVE: CASE EVENT DATE: 20160101
